FAERS Safety Report 17957437 (Version 1)
Quarter: 2020Q2

REPORT INFORMATION
  Report Type: Spontaneous
  Country: CA (occurrence: CA)
  Receive Date: 20200629
  Receipt Date: 20200629
  Transmission Date: 20200714
  Serious: Yes (Other)
  Sender: FDA-Public Use
  Company Number: CA-PFIZER INC-2020246461

PATIENT
  Age: 69 Year
  Sex: Female

DRUGS (2)
  1. EFFEXOR XR [Suspect]
     Active Substance: VENLAFAXINE HYDROCHLORIDE
     Dosage: 225 MG, DAILY (THREE 75MG CAPSULES)
     Route: 048
  2. EFFEXOR XR [Suspect]
     Active Substance: VENLAFAXINE HYDROCHLORIDE
     Dosage: 37.5 UNK (TO EQUAL 150 MG DOSE)
     Route: 048

REACTIONS (6)
  - Foreign body in throat [Unknown]
  - Product size issue [Unknown]
  - Dyspepsia [Unknown]
  - Poor quality sleep [Unknown]
  - Abdominal pain upper [Unknown]
  - Flatulence [Unknown]
